FAERS Safety Report 8557614-7 (Version None)
Quarter: 2012Q3

REPORT INFORMATION
  Report Type: 
  Country: None (occurrence: None)
  Receive Date: 20120801
  Receipt Date: 20120719
  Transmission Date: 20120928
  Serious: Yes (Death)
  Sender: FDA-Public Use
  Company Number: US-MYLANLABS-2010S1013134

PATIENT
  Age: 57 Year
  Sex: Male
  Weight: 122.02 kg

DRUGS (18)
  1. CIPROFLAXACIN [Concomitant]
  2. LYRICA [Concomitant]
  3. METAXALONE [Suspect]
     Route: 048
  4. CITALOPRAM HYDROBROMIDE [Suspect]
     Route: 048
  5. NEXIUM [Concomitant]
  6. LEXAPRO [Concomitant]
  7. AMOXICILLIN [Concomitant]
  8. SULFAMETHOXAZOLE [Concomitant]
  9. HYDROCHLOROTHIAZIDE [Concomitant]
  10. BUSPIRONE HCL [Concomitant]
  11. FENTANYL-100 [Suspect]
     Indication: PAIN
     Route: 062
     Dates: start: 20080801
  12. CELEBREX [Concomitant]
  13. SENNA-MINT WAF [Concomitant]
  14. SILVER SULFADIAZINE [Concomitant]
  15. METAMUCIL-2 [Concomitant]
  16. OXYCODONE HCL [Suspect]
     Dosage: EVERY 4 TO 6 HOURS
     Route: 048
  17. SKELAXIN [Concomitant]
  18. CALCIUM CARBONATE [Concomitant]

REACTIONS (2)
  - OVERDOSE [None]
  - TOXICITY TO VARIOUS AGENTS [None]
